FAERS Safety Report 6423071-X (Version None)
Quarter: 2009Q4

REPORT INFORMATION
  Report Type: 
  Country: None (occurrence: None)
  Receive Date: 20091028
  Receipt Date: 20091016
  Transmission Date: 20100525
  Serious: Yes (Other)
  Sender: FDA-Public Use
  Company Number: 2009AP003476

PATIENT
  Age: 76 Year
  Sex: Male

DRUGS (4)
  1. CITALOPRAM HYDROBROMIDE [Suspect]
     Indication: ANXIETY
     Dosage: 10 MG; QD; PO; 20 MG; QD; PO; 40 MG; QD; PO
     Route: 048
     Dates: start: 20090622
  2. CITALOPRAM HYDROBROMIDE [Suspect]
     Indication: ANXIETY
     Dosage: 10 MG; QD; PO; 20 MG; QD; PO; 40 MG; QD; PO
     Route: 048
     Dates: start: 20090701
  3. ANTIHYPERTENSIVES [Concomitant]
  4. CARDIAC THERAPY [Concomitant]

REACTIONS (6)
  - EATING DISORDER [None]
  - LIP ULCERATION [None]
  - MOUTH ULCERATION [None]
  - SPEECH DISORDER [None]
  - SWOLLEN TONGUE [None]
  - TONGUE ULCERATION [None]
